FAERS Safety Report 21453178 (Version 1)
Quarter: 2022Q4

REPORT INFORMATION
  Report Type: Spontaneous
  Country: PT (occurrence: PT)
  Receive Date: 20221013
  Receipt Date: 20221013
  Transmission Date: 20230113
  Serious: Yes (Other)
  Sender: FDA-Public Use
  Company Number: PT-TEVA-2022-PT-2081878

PATIENT
  Age: 76 Year
  Sex: Male

DRUGS (1)
  1. CISPLATIN [Suspect]
     Active Substance: CISPLATIN
     Indication: Lung neoplasm malignant
     Route: 065
     Dates: start: 201504, end: 201508

REACTIONS (1)
  - Lung neoplasm malignant [Recovered/Resolved]

NARRATIVE: CASE EVENT DATE: 20150101
